FAERS Safety Report 7859350-9 (Version None)
Quarter: 2011Q4

REPORT INFORMATION
  Report Type: 
  Country: None (occurrence: None)
  Receive Date: 20111026
  Receipt Date: 20111026
  Transmission Date: 20120403
  Serious: No
  Sender: FDA-Public Use
  Company Number: None

PATIENT
  Sex: Male
  Weight: 81.6 kg

DRUGS (1)
  1. INTRON A [Suspect]
     Dosage: 400 MILLION IU
     Dates: end: 20111014

REACTIONS (1)
  - NEUTROPENIA [None]
